FAERS Safety Report 4686040-6 (Version None)
Quarter: 2005Q2

REPORT INFORMATION
  Report Type: 
  Country: None (occurrence: None)
  Receive Date: 20050609
  Receipt Date: 20050530
  Transmission Date: 20051028
  Serious: Yes (Other)
  Sender: FDA-Public Use
  Company Number: US-JNJFOC-20050601725

PATIENT
  Age: 51 Year
  Sex: Male
  Weight: 77.11 kg

DRUGS (2)
  1. IMMODIUM ADVANCED [Suspect]
     Route: 049
  2. IMMODIUM ADVANCED [Suspect]
     Route: 049

REACTIONS (4)
  - CONFUSIONAL STATE [None]
  - CONVULSION [None]
  - DISORIENTATION [None]
  - LOSS OF CONSCIOUSNESS [None]
